FAERS Safety Report 7237531-5 (Version None)
Quarter: 2011Q1

REPORT INFORMATION
  Report Type: 
  Country: None (occurrence: None)
  Receive Date: 20110121
  Receipt Date: 20110114
  Transmission Date: 20110831
  Serious: Yes (Other)
  Sender: FDA-Public Use
  Company Number: NO-PFIZER INC-2011009526

PATIENT
  Age: 30 Year
  Sex: Female

DRUGS (3)
  1. LYRICA [Suspect]
     Dosage: 1000 MG/DAG
     Route: 048
     Dates: end: 20101001
  2. VIVAL [Concomitant]
     Dosage: UNK
  3. LYRICA [Suspect]
     Indication: ANXIETY
     Dosage: UNK
     Route: 048

REACTIONS (5)
  - HYPERHIDROSIS [None]
  - VOMITING [None]
  - WITHDRAWAL SYNDROME [None]
  - HEADACHE [None]
  - ANXIETY [None]
